FAERS Safety Report 6109497-2 (Version None)
Quarter: 2009Q1

REPORT INFORMATION
  Report Type: 
  Country: None (occurrence: None)
  Receive Date: 20090306
  Receipt Date: 20090306
  Transmission Date: 20090719
  Serious: Yes (Death, Hospitalization)
  Sender: FDA-Public Use
  Company Number: None

PATIENT
  Sex: Male
  Weight: 59.4 kg

DRUGS (4)
  1. CETUXIMAB [Suspect]
     Indication: METASTASIS
     Dosage: 760 MG, 475 MG C1D1, C1D8 IV DRIP
     Route: 041
     Dates: start: 20090219, end: 20090226
  2. CETUXIMAB [Suspect]
     Indication: RECURRENT CANCER
     Dosage: 760 MG, 475 MG C1D1, C1D8 IV DRIP
     Route: 041
     Dates: start: 20090219, end: 20090226
  3. CETUXIMAB [Suspect]
     Indication: TONSIL CANCER
     Dosage: 760 MG, 475 MG C1D1, C1D8 IV DRIP
     Route: 041
     Dates: start: 20090219, end: 20090226
  4. OXALIPLATIN [Suspect]
     Dosage: 245 MG C1D1 IV DRIP
     Route: 041
     Dates: start: 20090219, end: 20090219

REACTIONS (15)
  - APHONIA [None]
  - BRADYCARDIA [None]
  - CARDIAC ARREST [None]
  - DIARRHOEA [None]
  - HEART RATE INCREASED [None]
  - HYPOKALAEMIA [None]
  - HYPOTENSION [None]
  - METABOLIC ACIDOSIS [None]
  - NAUSEA [None]
  - PYREXIA [None]
  - RENAL FAILURE ACUTE [None]
  - TACHYPNOEA [None]
  - UNRESPONSIVE TO STIMULI [None]
  - UPPER GASTROINTESTINAL HAEMORRHAGE [None]
  - VOMITING [None]
